FAERS Safety Report 6731349-5 (Version None)
Quarter: 2010Q2

REPORT INFORMATION
  Report Type: 
  Country: None (occurrence: None)
  Receive Date: 20100517
  Receipt Date: 20100517
  Transmission Date: 20101027
  Serious: Yes (Life-Threatening, Hospitalization)
  Sender: FDA-Public Use
  Company Number: None

PATIENT
  Age: 23 Year
  Sex: Male
  Weight: 76.1 kg

DRUGS (1)
  1. RESTASIS [Suspect]
     Indication: PROPHYLAXIS AGAINST GRAFT VERSUS HOST DISEASE
     Dosage: 1 DROP EACH EYE TWICE DAILY SUBCONJUNCTIVAL
     Dates: start: 20100205, end: 20100507

REACTIONS (1)
  - GRAFT VERSUS HOST DISEASE [None]
